FAERS Safety Report 7631825-7 (Version None)
Quarter: 2011Q3

REPORT INFORMATION
  Report Type: 
  Country: None (occurrence: None)
  Receive Date: 20110725
  Receipt Date: 20110412
  Transmission Date: 20111222
  Serious: No
  Sender: FDA-Public Use
  Company Number: US-BRISTOL-MYERS SQUIBB COMPANY-15662547

PATIENT
  Age: 36 Year
  Sex: Female

DRUGS (1)
  1. COUMADIN [Suspect]
     Dates: end: 20110201

REACTIONS (1)
  - PREGNANCY [None]
